FAERS Safety Report 9891200 (Version 1)
Quarter: 2014Q1

REPORT INFORMATION
  Report Type: Spontaneous
  Country: US (occurrence: US)
  Receive Date: 20140212
  Receipt Date: 20140212
  Transmission Date: 20141002
  Serious: No
  Sender: FDA-Public Use
  Company Number: US-009507513-1402USA002766

PATIENT
  Age: 33 Year
  Sex: Female

DRUGS (5)
  1. CLARITIN-D-12 [Suspect]
     Indication: SEASONAL ALLERGY
     Dosage: UNK, UNKNOWN
     Route: 048
  2. CLARITIN-D-12 [Suspect]
     Indication: SINUS HEADACHE
  3. CLARITIN-D-12 [Suspect]
     Indication: RHINORRHOEA
  4. CLARITIN-D-12 [Suspect]
     Indication: PAIN
  5. CLARITIN-D-12 [Suspect]
     Indication: EYE SWELLING

REACTIONS (2)
  - Dry mouth [Unknown]
  - Drug effect delayed [Unknown]
